FAERS Safety Report 16318800 (Version 2)
Quarter: 2019Q2

REPORT INFORMATION
  Report Type: Spontaneous
  Country: JP (occurrence: JP)
  Receive Date: 20190516
  Receipt Date: 20190612
  Transmission Date: 20190711
  Serious: Yes (Life-Threatening, Other)
  Sender: FDA-Public Use
  Company Number: JP-ACCORD-123430

PATIENT
  Age: 59 Year
  Sex: Female

DRUGS (4)
  1. FLUOROURACIL. [Suspect]
     Active Substance: FLUOROURACIL
     Indication: COLON CANCER METASTATIC
     Dosage: BOLUS ADMINISTRATION ON DAY 1. 2 WEEKS PER CYCLE.
  2. OXALIPLATIN. [Suspect]
     Active Substance: OXALIPLATIN
     Indication: COLON CANCER METASTATIC
     Dosage: BOLUS ADMINISTRATION ON DAY 1. 2 WEEKS PER CYCLE.
  3. FOLINIC ACID [Suspect]
     Active Substance: LEUCOVORIN
     Indication: COLON CANCER METASTATIC
     Dosage: BOLUS ADMINISTRATION ON DAY 1. 2 WEEKS PER CYCLE.
  4. CETUXIMAB. [Suspect]
     Active Substance: CETUXIMAB
     Indication: COLON CANCER METASTATIC
     Dosage: ON DAY 1 OF EACH COURSE. 2 WEEKS PER CYCLE, 250 MG/M2 ON DAY 1 AND 8. 2 WEEKS PER CYCLE

REACTIONS (1)
  - Drug ineffective [Unknown]
